FAERS Safety Report 13539376 (Version 2)
Quarter: 2017Q2

REPORT INFORMATION
  Report Type: Spontaneous
  Country: US (occurrence: US)
  Receive Date: 20170512
  Receipt Date: 20170620
  Transmission Date: 20170830
  Serious: No
  Sender: FDA-Public Use
  Company Number: US-PFIZER INC-2017207425

PATIENT
  Age: 59 Year
  Sex: Female

DRUGS (2)
  1. ALPRAZOLAM. [Suspect]
     Active Substance: ALPRAZOLAM
     Indication: ANXIETY DISORDER
  2. ALPRAZOLAM. [Suspect]
     Active Substance: ALPRAZOLAM
     Indication: PANIC DISORDER
     Dosage: 1 MG, 1X/DAY
     Dates: start: 2004, end: 2004

REACTIONS (3)
  - Abdominal discomfort [Unknown]
  - Drug intolerance [Unknown]
  - Skin disorder [Unknown]

NARRATIVE: CASE EVENT DATE: 2004
